FAERS Safety Report 8919117 (Version 2)
Quarter: 2013Q4

REPORT INFORMATION
  Report Type: Spontaneous
  Country: US (occurrence: US)
  Receive Date: 20121121
  Receipt Date: 20131101
  Transmission Date: 20140711
  Serious: Yes (Life-Threatening)
  Sender: FDA-Public Use
  Company Number: US-BAYER-2012-119489

PATIENT
  Age: 14 Year
  Sex: Female

DRUGS (14)
  1. OCELLA [Suspect]
  2. ZARAH [Suspect]
     Dosage: UNK
  3. YAZ [Suspect]
  4. YASMIN [Suspect]
  5. GIANVI [Suspect]
  6. BEYAZ [Suspect]
  7. SIMVASTATIN [Concomitant]
     Dosage: 40 MG, UNK
  8. METFORMIN [Concomitant]
     Dosage: 500 MG, UNK
  9. LISINOPRIL [Concomitant]
     Dosage: 10 MG, UNK
  10. CRESTOR [Concomitant]
     Dosage: 10 MG, UNK
  11. FUROSEMIDE [Concomitant]
     Dosage: 40 MG, UNK
  12. SYMBICORT [Concomitant]
     Dosage: 160/4.5MCG
  13. ZYRTEC [Concomitant]
  14. EPIPEN 2-PAK [Concomitant]

REACTIONS (9)
  - Pulmonary embolism [None]
  - Deep vein thrombosis [None]
  - Emotional distress [None]
  - Pain [None]
  - General physical health deterioration [None]
  - Anxiety [None]
  - Anhedonia [None]
  - Injury [None]
  - Pain [None]
